FAERS Safety Report 6242652-X (Version None)
Quarter: 2009Q2

REPORT INFORMATION
  Report Type: 
  Country: None (occurrence: None)
  Receive Date: 20090622
  Receipt Date: 20090622
  Transmission Date: 20091009
  Serious: Yes (Other)
  Sender: FDA-Public Use
  Company Number: None

PATIENT
  Age: 28 Year
  Sex: Male
  Weight: 115.6672 kg

DRUGS (1)
  1. ZICAM SWABS [Suspect]
     Indication: NASOPHARYNGITIS
     Dosage: SWAB THE NOSE TWICE DAY NASAL
     Route: 045
     Dates: start: 20081215, end: 20090203

REACTIONS (2)
  - ANOSMIA [None]
  - HEADACHE [None]
